FAERS Safety Report 22069160 (Version 1)
Quarter: 2023Q1

REPORT INFORMATION
  Report Type: Spontaneous
  Country: DE (occurrence: DE)
  Receive Date: 20230307
  Receipt Date: 20230307
  Transmission Date: 20230417
  Serious: Yes (Other)
  Sender: FDA-Public Use
  Company Number: DE-AstraZeneca-2023A031965

PATIENT
  Age: 15 Year

DRUGS (2)
  1. FORMOTEROL [Suspect]
     Active Substance: FORMOTEROL
     Indication: Product used for unknown indication
     Dosage: BEFORE EXERCISE
  2. ALBUTEROL [Concomitant]
     Active Substance: ALBUTEROL
     Dosage: UNK
     Route: 065

REACTIONS (3)
  - Bronchial hyperreactivity [Unknown]
  - Peak expiratory flow rate abnormal [Unknown]
  - Infection [Unknown]

NARRATIVE: CASE EVENT DATE: 20211001
